FAERS Safety Report 4283671-2 (Version None)
Quarter: 2004Q1

REPORT INFORMATION
  Report Type: 
  Country: None (occurrence: None)
  Receive Date: 20040115
  Receipt Date: 20030112
  Transmission Date: 20041129
  Serious: Yes (Death, Hospitalization)
  Sender: FDA-Public Use
  Company Number: NSADSS2003008034

PATIENT
  Age: 69 Year
  Sex: Female
  Weight: 85 kg

DRUGS (4)
  1. DOXIL [Suspect]
     Indication: BREAST CANCER FEMALE
     Dosage: 72, 1 IN 4 WEEK; INTRAVENOUS DRIP
     Route: 041
     Dates: start: 20020910, end: 20020910
  2. ATIVAN [Concomitant]
  3. ZOFRAN [Concomitant]
  4. DARVON [Concomitant]

REACTIONS (14)
  - ANAEMIA [None]
  - ASCITES [None]
  - COLLAPSE OF LUNG [None]
  - CONDITION AGGRAVATED [None]
  - DYSPNOEA [None]
  - GENERALISED OEDEMA [None]
  - HEPATIC FUNCTION ABNORMAL [None]
  - HYPOKALAEMIA [None]
  - HYPOPROTEINAEMIA [None]
  - PAIN [None]
  - PERICARDIAL EFFUSION [None]
  - PLEURAL EFFUSION [None]
  - PYREXIA [None]
  - VERTIGO [None]
